FAERS Safety Report 14365567 (Version 1)
Quarter: 2018Q1

REPORT INFORMATION
  Report Type: Spontaneous
  Country: CN (occurrence: CN)
  Receive Date: 20180109
  Receipt Date: 20180109
  Transmission Date: 20180509
  Serious: Yes (Hospitalization, Other)
  Sender: FDA-Public Use
  Company Number: CN-JNJFOC-20171232605

PATIENT

DRUGS (3)
  1. IBUPROFEN. [Suspect]
     Active Substance: IBUPROFEN
     Route: 065
  2. IBUPROFEN. [Suspect]
     Active Substance: IBUPROFEN
     Indication: PATENT DUCTUS ARTERIOSUS
     Route: 065
  3. HYDROCORTISONE. [Suspect]
     Active Substance: HYDROCORTISONE
     Indication: PATENT DUCTUS ARTERIOSUS
     Route: 065

REACTIONS (8)
  - Thrombocytopenia [Unknown]
  - Stress ulcer [Unknown]
  - Necrotising colitis [Unknown]
  - Therapeutic response unexpected [Unknown]
  - Renal impairment [Unknown]
  - Product use in unapproved indication [Unknown]
  - Off label use [Unknown]
  - Fungal infection [Unknown]
